FAERS Safety Report 13230980 (Version 2)
Quarter: 2017Q1

REPORT INFORMATION
  Report Type: Spontaneous
  Country: US (occurrence: US)
  Receive Date: 20170214
  Receipt Date: 20170309
  Transmission Date: 20170428
  Serious: Yes (Death, Hospitalization, Other)
  Sender: FDA-Public Use
  Company Number: US-SIGMA-TAU US-2017STPI000061

PATIENT
  Age: 33 Year
  Sex: Female

DRUGS (12)
  1. BLEOMYCIN [Suspect]
     Active Substance: BLEOMYCIN SULFATE
     Indication: HODGKIN^S DISEASE
     Dosage: 10 IU/M2, Q3W
     Route: 042
     Dates: start: 20161025, end: 20161212
  2. CYCLOPHOSPHAMIDE. [Suspect]
     Active Substance: CYCLOPHOSPHAMIDE
     Indication: HODGKIN^S DISEASE
     Dosage: UNK
     Dates: end: 20161212
  3. MEGESTROL [Concomitant]
     Active Substance: MEGESTROL
  4. PANTOPRAZOLE [Concomitant]
     Active Substance: PANTOPRAZOLE SODIUM
  5. SERTRALINE [Concomitant]
     Active Substance: SERTRALINE HYDROCHLORIDE
  6. ETOPOSIDE. [Suspect]
     Active Substance: ETOPOSIDE
     Indication: HODGKIN^S DISEASE
     Dosage: 200 MG/M2, Q3W
     Route: 042
     Dates: start: 20161017, end: 20161212
  7. ONCOVIN [Suspect]
     Active Substance: VINCRISTINE SULFATE
     Indication: HODGKIN^S DISEASE
     Dosage: 1700 MG/M2, Q3W
     Route: 042
     Dates: start: 20161017, end: 20161212
  8. MATULANE [Suspect]
     Active Substance: PROCARBAZINE HYDROCHLORIDE
     Indication: HODGKIN^S DISEASE
     Dosage: 200 MG, QD DAYS 1-7
     Route: 048
     Dates: start: 20161021, end: 201612
  9. PREDNISONE                         /00044702/ [Suspect]
     Active Substance: PREDNISONE
     Indication: HODGKIN^S DISEASE
     Dosage: UNK
  10. LORAZEPAM. [Concomitant]
     Active Substance: LORAZEPAM
  11. ADRIAMYCIN [Suspect]
     Active Substance: DOXORUBICIN HYDROCHLORIDE
     Indication: HODGKIN^S DISEASE
     Dosage: 35 MG/M2, Q3W
     Route: 042
     Dates: start: 20161017, end: 20161212
  12. ZOLPIDEM [Concomitant]
     Active Substance: ZOLPIDEM\ZOLPIDEM TARTRATE

REACTIONS (7)
  - Dry gangrene [Unknown]
  - Generalised oedema [Not Recovered/Not Resolved]
  - Pneumonia klebsiella [None]
  - Respiratory failure [Not Recovered/Not Resolved]
  - Acute kidney injury [Unknown]
  - Septic shock [Fatal]
  - Diarrhoea [Unknown]

NARRATIVE: CASE EVENT DATE: 201612
